FAERS Safety Report 14547418 (Version 2)
Quarter: 2018Q1

REPORT INFORMATION
  Report Type: Spontaneous
  Country: PT (occurrence: PT)
  Receive Date: 20180219
  Receipt Date: 20180305
  Transmission Date: 20180509
  Serious: Yes (Other)
  Sender: FDA-Public Use
  Company Number: PT-ABBVIE-18S-130-2252390-00

PATIENT
  Age: 49 Year
  Sex: Female
  Weight: 56 kg

DRUGS (5)
  1. ALPRAZOLAM. [Concomitant]
     Active Substance: ALPRAZOLAM
     Indication: PRODUCT USED FOR UNKNOWN INDICATION
     Route: 065
  2. PAROXETINE. [Concomitant]
     Active Substance: PAROXETINE
     Indication: PRODUCT USED FOR UNKNOWN INDICATION
     Route: 065
  3. VANCOMYCIN [Concomitant]
     Active Substance: VANCOMYCIN
     Indication: PRODUCT USED FOR UNKNOWN INDICATION
     Route: 065
     Dates: end: 201708
  4. KALETRA [Suspect]
     Active Substance: LOPINAVIR\RITONAVIR
     Indication: PRODUCT USED FOR UNKNOWN INDICATION
     Route: 065
  5. VIREAD [Suspect]
     Active Substance: TENOFOVIR DISOPROXIL FUMARATE
     Indication: PRODUCT USED FOR UNKNOWN INDICATION
     Route: 048
     Dates: start: 20050228, end: 20170813

REACTIONS (4)
  - Acute kidney injury [Recovering/Resolving]
  - Septic shock [Unknown]
  - Pneumonia [Unknown]
  - Fanconi syndrome acquired [Unknown]
